FAERS Safety Report 20687023 (Version 1)
Quarter: 2022Q2

REPORT INFORMATION
  Report Type: Spontaneous
  Country: DK (occurrence: DK)
  Receive Date: 20220407
  Receipt Date: 20220407
  Transmission Date: 20220721
  Serious: Yes (Other)
  Sender: FDA-Public Use
  Company Number: DK-BioDelivery Sciences International-2022BDSI0127

PATIENT
  Age: 15 Year
  Sex: Male

DRUGS (2)
  1. ONSOLIS [Suspect]
     Active Substance: FENTANYL CITRATE
     Indication: Pain
     Dosage: UNKNOWN; UNKNOWN
     Route: 065
     Dates: start: 20200507, end: 20200507
  2. DEXAMETHASONE [Suspect]
     Active Substance: DEXAMETHASONE
     Indication: Prophylaxis of nausea and vomiting
     Route: 065
     Dates: start: 20200507, end: 20200507

REACTIONS (2)
  - Memory impairment [Recovered/Resolved]
  - Hallucination [Recovered/Resolved]

NARRATIVE: CASE EVENT DATE: 20200507
